FAERS Safety Report 24003622 (Version 1)
Quarter: 2024Q2

REPORT INFORMATION
  Report Type: Spontaneous
  Country: US (occurrence: US)
  Receive Date: 20240624
  Receipt Date: 20240624
  Transmission Date: 20240715
  Serious: Yes (Hospitalization, Other)
  Sender: FDA-Public Use
  Company Number: US-MLMSERVICE-20240605-PI088983-00071-1

PATIENT
  Age: 74 Year
  Sex: Male

DRUGS (4)
  1. BUDESONIDE [Suspect]
     Active Substance: BUDESONIDE
     Indication: Chronic obstructive pulmonary disease
     Dosage: UNK
  2. BUDESONIDE\FORMOTEROL\GLYCOPYRRONIUM [Suspect]
     Active Substance: BUDESONIDE\FORMOTEROL\GLYCOPYRRONIUM
     Indication: Chronic obstructive pulmonary disease
     Dosage: UNK
  3. OXYGEN [Concomitant]
     Active Substance: OXYGEN
     Indication: Oxygen therapy
     Dosage: 6 LITER (HE INCREASED HIS OXYGEN SUPPLEMENTATION TO THE MAXIMUM OF 6 L)
     Route: 045
  4. OXYGEN [Concomitant]
     Active Substance: OXYGEN
     Dosage: 2 LITER (2 L NASAL CANNULA OXYGEN SUPPLEMENTATION AT BASELINE)
     Route: 045

REACTIONS (7)
  - Pulmonary hypertension [Recovering/Resolving]
  - Pneumonia bacterial [Recovering/Resolving]
  - Bacterial sepsis [Recovering/Resolving]
  - Bacteraemia [Recovering/Resolving]
  - Pulmonary fibrosis [Recovering/Resolving]
  - Respiratory failure [Recovering/Resolving]
  - Emphysema [Recovering/Resolving]
